FAERS Safety Report 15378735 (Version 1)
Quarter: 2018Q3

REPORT INFORMATION
  Report Type: Spontaneous
  Country: US (occurrence: US)
  Receive Date: 20180913
  Receipt Date: 20180913
  Transmission Date: 20181010
  Serious: No
  Sender: FDA-Public Use
  Company Number: US-SA-2018SA255362

PATIENT
  Age: 78 Year
  Sex: Female

DRUGS (1)
  1. LANTUS [Suspect]
     Active Substance: INSULIN GLARGINE
     Indication: TYPE 1 DIABETES MELLITUS
     Dosage: 19?20 UNITS, QD
     Route: 065

REACTIONS (4)
  - Blood glucose increased [Unknown]
  - Headache [Unknown]
  - Hyperhidrosis [Unknown]
  - Injection site pain [Unknown]
